FAERS Safety Report 4925210-6 (Version None)
Quarter: 2006Q1

REPORT INFORMATION
  Report Type: 
  Country: None (occurrence: None)
  Receive Date: 20060228
  Receipt Date: 20060130
  Transmission Date: 20060701
  Serious: No
  Sender: FDA-Public Use
  Company Number: US-GLAXOSMITHKLINE-A0591490A

PATIENT
  Age: 76 Year
  Sex: Male

DRUGS (4)
  1. AVODART [Suspect]
     Indication: BENIGN PROSTATIC HYPERPLASIA
     Dosage: 1CAP PER DAY
     Route: 048
  2. COREG [Concomitant]
  3. ACTOS [Concomitant]
  4. GLYBURIDE [Concomitant]

REACTIONS (1)
  - BREAST TENDERNESS [None]
